FAERS Safety Report 9209995 (Version 1)
Quarter: 2012Q4

REPORT INFORMATION
  Report Type: 
  Country: IT (occurrence: IT)
  Receive Date: 20120903
  Receipt Date: 20120903
  Transmission Date: 20130627
  Serious: Yes (Other)
  Sender: FDA-Public Use
  Company Number: CHPA2012IT019060

PATIENT
  Age: 82 Year
  Sex: Female

DRUGS (2)
  1. BENEFIBRA [Suspect]
     Dosage: 1 DF, UNK
     Route: 048
  2. GUAR GUM [Suspect]
     Dosage: Unk, Unk
     Route: 048

REACTIONS (2)
  - Abdominal pain upper [Not Recovered/Not Resolved]
  - Constipation [Recovered/Resolved]
